FAERS Safety Report 6165741-7 (Version None)
Quarter: 2009Q2

REPORT INFORMATION
  Report Type: 
  Country: None (occurrence: None)
  Receive Date: 20090421
  Receipt Date: 20090213
  Transmission Date: 20091009
  Serious: Yes (Death)
  Sender: FDA-Public Use
  Company Number: 244227

PATIENT
  Age: 71 Year
  Sex: Male
  Weight: 75 kg

DRUGS (7)
  1. CARBOPLATIN [Suspect]
     Indication: NON-SMALL CELL LUNG CANCER
     Dosage: 430 MG, 1 IN 3 WEEKS, INTRAVENOUS, ONGOING UNTIL THE PATIENTS DEATH
     Route: 042
     Dates: start: 20090122, end: 20090127
  2. PACLITAXEL [Suspect]
     Indication: NON-SMALL CELL LUNG CANCER
     Dosage: 360 MG, 1 IN 3 WEEKS, INTRAVENOUS, ONGOING UNTIL THE PATIENTS DEATH
     Route: 042
     Dates: start: 20090122, end: 20090127
  3. (OTHER CHEMOTHERAPEUTICS) [Suspect]
     Indication: NON-SMALL CELL LUNG CANCER
     Dosage: 1500 MG, 1 IN 3 WEEKS, INTRAVENOUS, ONGOING UNTIL PATIENTS DEATH
     Route: 042
     Dates: start: 20090122, end: 20090127
  4. AMIODARONE HYDROCHLORIDE [Concomitant]
  5. (PERINDOPRIL) [Concomitant]
  6. FUROSEMIDE [Concomitant]
  7. BISOPROLOL FUMARATE [Concomitant]

REACTIONS (1)
  - DIARRHOEA [None]
